FAERS Safety Report 25029797 (Version 10)
Quarter: 2025Q4

REPORT INFORMATION
  Report Type: Spontaneous
  Country: JP (occurrence: JP)
  Receive Date: 20250303
  Receipt Date: 20251024
  Transmission Date: 20260118
  Serious: Yes (Death, Life-Threatening, Hospitalization, Disabling, Other)
  Sender: MERCK SHARP & DOHME LLC
  Company Number: JP-MSD-2501JPN001889J

PATIENT
  Age: 63 Year
  Sex: Female
  Weight: 54 kg

DRUGS (9)
  1. KEYTRUDA [Suspect]
     Active Substance: PEMBROLIZUMAB
     Indication: Uterine cancer
     Dosage: DOSE DESCRIPTION : 200 MILLIGRAM, Q3W?DAILY DOSE : 9.4 MILLIGRAM?REGIMEN DOSE : 200  MILLIGRAM?LA...
     Route: 041
     Dates: start: 20250106, end: 2025
  2. LENVATINIB MESYLATE [Suspect]
     Active Substance: LENVATINIB MESYLATE
     Indication: Uterine cancer
     Dosage: DOSE DESCRIPTION : 10 MILLIGRAM, QD
     Route: 048
  3. LENVATINIB MESYLATE [Suspect]
     Active Substance: LENVATINIB MESYLATE
     Indication: Uterine cancer
     Dosage: DOSE DESCRIPTION : 20 MILLIGRAM, QD?DAILY DOSE : 20 MILLIGRAM?CONCENTRATION: 10 MILLIGRAM
     Route: 048
     Dates: start: 20250106, end: 20250213
  4. NIFEDIPINE [Concomitant]
     Active Substance: NIFEDIPINE
     Dosage: STRENGTH: 20 MG
  5. Rebamipide ^Otsuka^ [Concomitant]
     Dosage: STRENGTH: 100 MG
  6. Loxoprofen Sodium ^Towa^ [Concomitant]
     Dosage: STRENGTH: 60 MG
  7. Brotizolam ^Yoshitomi^ [Concomitant]
     Dosage: STRENGTH: 0.25MG
  8. DSEP [Concomitant]
     Dosage: STRENGTH: 2.5MG
  9. Amel [Concomitant]
     Dosage: STRENGTH: 30MG

REACTIONS (19)
  - Cerebral haemorrhage [Fatal]
  - Therapy partial responder [Unknown]
  - Haematuria [Unknown]
  - Hypoxic-ischaemic encephalopathy [Not Recovered/Not Resolved]
  - Proteinuria [Unknown]
  - Blindness [Unknown]
  - Uveitis [Not Recovered/Not Resolved]
  - Gastrointestinal ulcer haemorrhage [Not Recovered/Not Resolved]
  - Malignant neoplasm progression [Unknown]
  - Acute respiratory distress syndrome [Recovering/Resolving]
  - Aspartate aminotransferase increased [Recovered/Resolved]
  - Brain stem haemorrhage [Unknown]
  - Mydriasis [Unknown]
  - Multiple organ dysfunction syndrome [Unknown]
  - Haemorrhoidal haemorrhage [Recovered/Resolved]
  - Pulmonary alveolar haemorrhage [Unknown]
  - Erythema multiforme [Recovered/Resolved]
  - Immune-mediated uveitis [Not Recovered/Not Resolved]
  - Cytokine release syndrome [Fatal]

NARRATIVE: CASE EVENT DATE: 20250101
